FAERS Safety Report 8495688-2 (Version None)
Quarter: 2012Q3

REPORT INFORMATION
  Report Type: 
  Country: None (occurrence: None)
  Receive Date: 20120709
  Receipt Date: 20120705
  Transmission Date: 20120928
  Serious: No
  Sender: FDA-Public Use
  Company Number: US-PFIZER INC-2012161724

PATIENT
  Sex: Female
  Weight: 47.17 kg

DRUGS (2)
  1. CORTEF [Suspect]
     Indication: ADRENAL INSUFFICIENCY
     Dosage: 100 MG, DAILY
     Dates: start: 20070101
  2. LEVOXYL [Concomitant]
     Indication: THYROID DISORDER
     Dosage: 0.5 MG, DAILY
     Dates: start: 20070101

REACTIONS (1)
  - DRUG INEFFECTIVE [None]
